FAERS Safety Report 21633435 (Version 2)
Quarter: 2022Q4

REPORT INFORMATION
  Report Type: Spontaneous
  Country: US (occurrence: US)
  Receive Date: 20221123
  Receipt Date: 20221227
  Transmission Date: 20230112
  Serious: Yes (Hospitalization)
  Sender: FDA-Public Use
  Company Number: US-PFIZER INC-PV202200106430

PATIENT
  Age: 20 Year
  Sex: Female

DRUGS (1)
  1. XELJANZ [Suspect]
     Active Substance: TOFACITINIB CITRATE
     Indication: Rheumatoid arthritis
     Dosage: 5 MG, 2X/DAY
     Route: 048
     Dates: start: 202101, end: 2022

REACTIONS (3)
  - Oral candidiasis [Recovered/Resolved]
  - Viral infection [Recovered/Resolved]
  - Tooth extraction [Unknown]

NARRATIVE: CASE EVENT DATE: 20220701
